FAERS Safety Report 25104192 (Version 1)
Quarter: 2025Q1

REPORT INFORMATION
  Report Type: Spontaneous
  Country: CA (occurrence: CA)
  Receive Date: 20250321
  Receipt Date: 20250321
  Transmission Date: 20250409
  Serious: Yes (Other)
  Sender: ACCORD
  Company Number: CA-Accord-475346

PATIENT
  Age: 66 Year
  Sex: Male

DRUGS (1)
  1. FLUOROURACIL [Suspect]
     Active Substance: FLUOROURACIL
     Indication: Skin cancer
     Route: 061
     Dates: start: 2025

REACTIONS (1)
  - Prostatic haemorrhage [Recovered/Resolved]

NARRATIVE: CASE EVENT DATE: 20250101
